FAERS Safety Report 6764682-1 (Version None)
Quarter: 2010Q2

REPORT INFORMATION
  Report Type: 
  Country: None (occurrence: None)
  Receive Date: 20100609
  Receipt Date: 20100504
  Transmission Date: 20101027
  Serious: No
  Sender: FDA-Public Use
  Company Number: 2010010766

PATIENT
  Age: 5 Year
  Sex: Female
  Weight: 18.1439 kg

DRUGS (2)
  1. CHILDREN'S ZYRTEC ALLERGY [Suspect]
     Indication: HYPERSENSITIVITY
     Dosage: 1/2 TEASPOON ONCE DAILY,ORAL
     Route: 048
     Dates: start: 20100419, end: 20100421
  2. PARACETAMOL (PARACETAMOL) [Concomitant]

REACTIONS (3)
  - FEELING ABNORMAL [None]
  - OFF LABEL USE [None]
  - PRODUCT QUALITY ISSUE [None]
